FAERS Safety Report 17270001 (Version 1)
Quarter: 2020Q1

REPORT INFORMATION
  Report Type: Spontaneous
  Country: US (occurrence: US)
  Receive Date: 20191223
  Receipt Date: 20191223
  Transmission Date: 20200409
  Serious: No
  Sender: FDA-Public Use
  Company Number: None

PATIENT
  Age: 40 Year
  Sex: Male
  Weight: 200.03 kg

DRUGS (1)
  1. TOPAMAX [Suspect]
     Active Substance: TOPIRAMATE
     Indication: ALCOHOL USE DISORDER
     Dates: start: 20190924, end: 20191004

REACTIONS (2)
  - Headache [None]
  - Angle closure glaucoma [None]

NARRATIVE: CASE EVENT DATE: 20191004
